FAERS Safety Report 22651836 (Version 1)
Quarter: 2023Q2

REPORT INFORMATION
  Report Type: Spontaneous
  Country: US (occurrence: US)
  Receive Date: 20230628
  Receipt Date: 20230628
  Transmission Date: 20230721
  Serious: No
  Sender: FDA-Public Use
  Company Number: US-CTI BIOPHARMA-2023US03653

PATIENT

DRUGS (6)
  1. VONJO [Suspect]
     Active Substance: PACRITINIB
     Indication: Myeloproliferative neoplasm
     Dosage: 200 MG, BID
     Route: 048
     Dates: start: 20230328
  2. ALDACTONE [Concomitant]
     Active Substance: SPIRONOLACTONE
  3. LOSARTAN POTASSIUM [Concomitant]
     Active Substance: LOSARTAN POTASSIUM
  4. FOLIC ACID [Concomitant]
     Active Substance: FOLIC ACID
  5. LOVASTATIN [Concomitant]
     Active Substance: LOVASTATIN
  6. METOPROLOL TARTRATE [Concomitant]
     Active Substance: METOPROLOL TARTRATE

REACTIONS (3)
  - Ageusia [Unknown]
  - Dysgeusia [Unknown]
  - Off label use [Unknown]
